FAERS Safety Report 21044094 (Version 1)
Quarter: 2022Q3

REPORT INFORMATION
  Report Type: Report from Study
  Country: TW (occurrence: TW)
  Receive Date: 20220705
  Receipt Date: 20220705
  Transmission Date: 20221027
  Serious: Yes (Death, Other)
  Sender: FDA-Public Use
  Company Number: TW-VER-202200001

PATIENT
  Sex: Male

DRUGS (1)
  1. TRIPTORELIN [Suspect]
     Active Substance: TRIPTORELIN
     Indication: Prostate cancer
     Route: 065

REACTIONS (4)
  - Cardiac failure congestive [Fatal]
  - Cardiovascular disorder [Fatal]
  - Myocardial ischaemia [Fatal]
  - Cerebrovascular accident [Fatal]
